FAERS Safety Report 18433536 (Version 6)
Quarter: 2021Q4

REPORT INFORMATION
  Report Type: Spontaneous
  Country: US (occurrence: US)
  Receive Date: 20201027
  Receipt Date: 20211223
  Transmission Date: 20220303
  Serious: No
  Sender: FDA-Public Use
  Company Number: US-PFIZER INC-2020413262

PATIENT
  Age: 61 Year
  Sex: Female

DRUGS (1)
  1. IBRANCE [Suspect]
     Active Substance: PALBOCICLIB
     Indication: Breast cancer female
     Dosage: 125 MG, CYCLIC (21 DAYS ON, THEN 7 DAYS OFF Q (EVERY) 28 DAYS)
     Route: 048
     Dates: start: 20200724

REACTIONS (7)
  - Poor quality product administered [Unknown]
  - Product physical issue [Unknown]
  - Product taste abnormal [Unknown]
  - Arthralgia [Not Recovered/Not Resolved]
  - Condition aggravated [Unknown]
  - Myalgia [Not Recovered/Not Resolved]
  - Fatigue [Not Recovered/Not Resolved]
